FAERS Safety Report 4386055-1 (Version None)
Quarter: 2004Q2

REPORT INFORMATION
  Report Type: 
  Country: None (occurrence: None)
  Receive Date: 20040607
  Receipt Date: 20030919
  Transmission Date: 20050107
  Serious: Yes (Other)
  Sender: FDA-Public Use
  Company Number: 347312

PATIENT
  Sex: 0

DRUGS (2)
  1. ROACCUTAN (ISOSTRETINOIN) 20 MG [Suspect]
     Indication: MEDICATION ERROR
     Dosage: 60 MG ORAL
     Route: 048
     Dates: start: 20030818, end: 20030818
  2. METHADONE HCL [Concomitant]

REACTIONS (4)
  - MEDICATION ERROR [None]
  - NO ADVERSE DRUG EFFECT [None]
  - NO ADVERSE EFFECT [None]
  - PREGNANCY [None]
